FAERS Safety Report 6396353-8 (Version None)
Quarter: 2009Q4

REPORT INFORMATION
  Report Type: 
  Country: None (occurrence: None)
  Receive Date: 20091012
  Receipt Date: 20090929
  Transmission Date: 20100525
  Serious: Yes (Hospitalization, Other)
  Sender: FDA-Public Use
  Company Number: PHHY2009JP27876

PATIENT
  Sex: Male
  Weight: 46 kg

DRUGS (8)
  1. ICL670A ICL+DISTAB [Suspect]
     Indication: MYELODYSPLASTIC SYNDROME
     Dosage: 500 MG DAILY
     Route: 048
     Dates: start: 20080918, end: 20081001
  2. ICL670A ICL+DISTAB [Suspect]
     Dosage: 500 MG DAILY
     Route: 048
     Dates: start: 20081010, end: 20081013
  3. ICL670A ICL+DISTAB [Suspect]
     Dosage: 125 MG, QD
     Route: 048
     Dates: start: 20090624, end: 20090708
  4. ADONA [Concomitant]
     Indication: MYELODYSPLASTIC SYNDROME
     Dosage: 1 DF, UNK
     Dates: start: 20090408, end: 20090408
  5. GRACEVIT [Concomitant]
     Indication: CHRONIC OBSTRUCTIVE PULMONARY DISEASE
     Dosage: 100 MG
     Route: 048
     Dates: start: 20090909, end: 20090916
  6. VITAMEDIN [Concomitant]
     Indication: MYELODYSPLASTIC SYNDROME
     Dosage: 2 DF, UNK
     Route: 048
     Dates: start: 20080903
  7. JUUZENTAIHOTOU [Concomitant]
     Indication: PROPHYLAXIS
     Dosage: 3 DF, UNK
     Route: 048
     Dates: start: 20081008, end: 20081022
  8. RED BLOOD CELLS [Concomitant]
     Dosage: 2 U, QMO
     Dates: start: 20080918, end: 20081013

REACTIONS (12)
  - ALANINE AMINOTRANSFERASE INCREASED [None]
  - ASPARTATE AMINOTRANSFERASE INCREASED [None]
  - BLOOD CREATININE INCREASED [None]
  - BLOOD LACTATE DEHYDROGENASE INCREASED [None]
  - BLOOD UREA INCREASED [None]
  - DIARRHOEA [None]
  - ENTERITIS [None]
  - ENTEROCOLITIS [None]
  - OEDEMA [None]
  - PNEUMONIA [None]
  - RASH [None]
  - STAPHYLOCOCCAL INFECTION [None]
